FAERS Safety Report 16032436 (Version 1)
Quarter: 2019Q1

REPORT INFORMATION
  Report Type: Spontaneous
  Country: US (occurrence: US)
  Receive Date: 20190304
  Receipt Date: 20190304
  Transmission Date: 20190418
  Serious: Yes (Other)
  Sender: FDA-Public Use
  Company Number: PHHY2019US046083

PATIENT
  Sex: Male
  Weight: 16 kg

DRUGS (2)
  1. DABRAFENIB [Suspect]
     Active Substance: DABRAFENIB
     Indication: ASTROCYTOMA, LOW GRADE
     Dosage: 5.25 MG/KG, QD
     Route: 065
  2. DABRAFENIB [Suspect]
     Active Substance: DABRAFENIB
     Dosage: 50 MG BID ON MONDAY, TUESDAY, THURSDAY, FRIDAY, SUNDAY AND 50 MG Q AM ON WEDNESDAY AND SATURDAY)
     Route: 065
     Dates: start: 201810

REACTIONS (3)
  - Electrocardiogram QT prolonged [Recovered/Resolved]
  - Product administered to patient of inappropriate age [Unknown]
  - Product use in unapproved indication [Unknown]
